FAERS Safety Report 9410101 (Version 2)
Quarter: 2013Q4

REPORT INFORMATION
  Report Type: Spontaneous
  Country: DE (occurrence: DE)
  Receive Date: 20130719
  Receipt Date: 20131017
  Transmission Date: 20140711
  Serious: Yes (Hospitalization, Disabling, Other)
  Sender: FDA-Public Use
  Company Number: DE-ROCHE-1248941

PATIENT
  Age: 42 Year
  Sex: Female
  Weight: 100 kg

DRUGS (10)
  1. RITUXIMAB [Suspect]
     Indication: NEUROMYELITIS OPTICA
     Route: 042
     Dates: start: 20120813
  2. RITUXIMAB [Suspect]
     Indication: OFF LABEL USE
  3. VALSARTAN [Concomitant]
     Route: 065
  4. VALSARTAN HCT [Concomitant]
     Route: 065
  5. L-THYROXIN [Concomitant]
     Route: 065
  6. FUROSEMIDE [Concomitant]
     Route: 065
  7. SERTRALINE [Concomitant]
     Route: 065
  8. QUETIAPINE [Concomitant]
     Route: 065
  9. ESTRADIOL [Concomitant]
     Route: 065
  10. ZOPICLONE [Concomitant]
     Route: 065

REACTIONS (5)
  - Skin necrosis [Recovered/Resolved]
  - Breast necrosis [Recovered/Resolved]
  - Oedema [Unknown]
  - Lymphangiectasia [Unknown]
  - Hypersensitivity [Recovering/Resolving]
